FAERS Safety Report 5469907-0 (Version None)
Quarter: 2007Q3

REPORT INFORMATION
  Report Type: 
  Country: None (occurrence: None)
  Receive Date: 20070927
  Receipt Date: 20070918
  Transmission Date: 20080115
  Serious: Yes (Other)
  Sender: FDA-Public Use
  Company Number: HQWYE258020SEP07

PATIENT
  Age: 11 Year
  Sex: Female

DRUGS (3)
  1. IBUPROFEN [Suspect]
     Indication: PYREXIA
     Dosage: UNKNOWN
     Route: 048
  2. COLISTIN SULFATE [Suspect]
     Indication: CYSTIC FIBROSIS
     Dosage: UNKNOWN
     Route: 055
  3. TOBRAMYCIN [Suspect]
     Indication: CYSTIC FIBROSIS
     Dosage: 4.08 MG/KG TWICE DAILY
     Route: 042

REACTIONS (1)
  - RENAL FAILURE ACUTE [None]
